FAERS Safety Report 25549997 (Version 1)
Quarter: 2025Q3

REPORT INFORMATION
  Report Type: Spontaneous
  Country: JP (occurrence: JP)
  Receive Date: 20250714
  Receipt Date: 20250714
  Transmission Date: 20251020
  Serious: Yes (Death)
  Sender: MERCK SHARP & DOHME LLC
  Company Number: JP-009507513-2293501

PATIENT
  Sex: Female

DRUGS (2)
  1. KEYTRUDA [Suspect]
     Active Substance: PEMBROLIZUMAB
     Indication: Uterine cancer
     Dosage: 200 MG, EVERY 3 WEEKS
     Route: 041
     Dates: start: 20250512
  2. LENVIMA [Suspect]
     Active Substance: LENVATINIB
     Indication: Uterine cancer
     Dosage: 20 MG ONCE A DAY
     Route: 048
     Dates: start: 20250512, end: 20250602

REACTIONS (2)
  - Malignant neoplasm progression [Fatal]
  - Proteinuria [Recovering/Resolving]

NARRATIVE: CASE EVENT DATE: 20250602
